FAERS Safety Report 7620136-1 (Version None)
Quarter: 2011Q3

REPORT INFORMATION
  Report Type: 
  Country: None (occurrence: None)
  Receive Date: 20110719
  Receipt Date: 20110712
  Transmission Date: 20111222
  Serious: Yes (Hospitalization)
  Sender: FDA-Public Use
  Company Number: FR-SANOFI-AVENTIS-2011SA040063

PATIENT
  Age: 75 Year
  Sex: Male

DRUGS (5)
  1. CALCIPARINE [Concomitant]
     Route: 058
     Dates: start: 20101001
  2. PREVISCAN [Suspect]
     Route: 048
     Dates: end: 20101125
  3. ASPIRIN [Concomitant]
  4. BISOPROLOL FUMARATE [Concomitant]
     Route: 048
     Dates: end: 20101125
  5. LASIX [Suspect]
     Route: 048
     Dates: end: 20101125

REACTIONS (1)
  - PANCYTOPENIA [None]
